FAERS Safety Report 9479055 (Version 2)
Quarter: 2013Q4

REPORT INFORMATION
  Report Type: Report from Study
  Country: JP (occurrence: JP)
  Receive Date: 20130827
  Receipt Date: 20131121
  Transmission Date: 20140711
  Serious: Yes (Death, Hospitalization, Other)
  Sender: FDA-Public Use
  Company Number: JP-BAYER-2013-102696

PATIENT
  Age: 76 Year
  Sex: Female
  Weight: 45 kg

DRUGS (9)
  1. STIVARGA [Suspect]
     Indication: COLON CANCER
     Dosage: 160 MG, QD
     Route: 048
     Dates: start: 20130725, end: 20130806
  2. ZOMETA [Suspect]
     Indication: HYPERCALCAEMIA
     Dosage: UNK
     Route: 041
     Dates: start: 20130810
  3. KERATINAMIN [Concomitant]
     Indication: DRUG TOXICITY PROPHYLAXIS
     Dosage: UNK
     Route: 061
     Dates: start: 20130724, end: 20130806
  4. WARFARIN [Concomitant]
     Dosage: DAILY DOSE 2 MG
     Route: 048
  5. ALDACTONE A [Concomitant]
     Dosage: DAILY DOSE 25 MG
     Route: 048
  6. LASIX [Concomitant]
     Dosage: DAILY DOSE 30 MG
     Route: 048
  7. LYRICA [Concomitant]
     Dosage: DAILY DOSE 300 MG
     Route: 048
  8. MAGLAX [Concomitant]
     Dosage: DAILY DOSE 1500 MG
     Route: 048
  9. PURSENNID [Concomitant]
     Dosage: UNK
     Route: 048

REACTIONS (11)
  - Colon cancer metastatic [Fatal]
  - Platelet count decreased [None]
  - Platelet count decreased [Recovered/Resolved]
  - Aspartate aminotransferase increased [Recovered/Resolved]
  - Rash [Recovered/Resolved]
  - Hypercalcaemia [Recovered/Resolved]
  - Altered state of consciousness [Recovered/Resolved]
  - Alanine aminotransferase increased [Recovered/Resolved]
  - Palmar-plantar erythrodysaesthesia syndrome [Recovered/Resolved]
  - Pyrexia [Recovered/Resolved]
  - Pyrexia [Recovered/Resolved]
